FAERS Safety Report 9815374 (Version 1)
Quarter: 2014Q1

REPORT INFORMATION
  Report Type: Spontaneous
  Country: GB (occurrence: GB)
  Receive Date: 20140114
  Receipt Date: 20140114
  Transmission Date: 20141002
  Serious: Yes (Hospitalization, Other)
  Sender: FDA-Public Use
  Company Number: GB-ROCHE-1333386

PATIENT
  Sex: Male
  Weight: 80 kg

DRUGS (2)
  1. XOLAIR [Suspect]
     Indication: PRODUCT USED FOR UNKNOWN INDICATION
     Route: 065
  2. XOLAIR [Suspect]
     Route: 065
     Dates: start: 20131209

REACTIONS (2)
  - Herpes zoster [Unknown]
  - Asthma [Recovered/Resolved]
